FAERS Safety Report 7668523-X (Version None)
Quarter: 2011Q3

REPORT INFORMATION
  Report Type: 
  Country: None (occurrence: None)
  Receive Date: 20110808
  Receipt Date: 20110803
  Transmission Date: 20111222
  Serious: Yes (Hospitalization)
  Sender: FDA-Public Use
  Company Number: FR-EISAI INC-E2020-09531-SPO-FR

PATIENT
  Sex: Male

DRUGS (7)
  1. ATORVASTATIN [Concomitant]
     Dosage: 10 MG DAILY
     Route: 048
  2. ZOPICLONE [Concomitant]
     Dosage: 3.75 MG DAILY
     Route: 048
  3. CLOPIDOGRE [Concomitant]
     Dosage: 75 MG DAILY
     Route: 048
  4. AMLODIPINE [Concomitant]
     Dosage: 5 MG DAILY
     Route: 048
  5. LORAZEPAM [Concomitant]
     Dosage: 2 MG DAILY
     Route: 048
  6. PERINDOPRIL [Concomitant]
     Dosage: 2 MG DAILY
     Route: 048
  7. ARICEPT [Suspect]
     Route: 048
     Dates: start: 20110608, end: 20110615

REACTIONS (2)
  - CHRONIC OBSTRUCTIVE PULMONARY DISEASE [None]
  - FALL [None]
